FAERS Safety Report 4692024-4 (Version None)
Quarter: 2005Q2

REPORT INFORMATION
  Report Type: 
  Country: None (occurrence: None)
  Receive Date: 20050614
  Receipt Date: 20050525
  Transmission Date: 20051028
  Serious: Yes (Other)
  Sender: FDA-Public Use
  Company Number: ATO-05-0161

PATIENT
  Age: 56 Year
  Sex: Male
  Weight: 97.5234 kg

DRUGS (1)
  1. TRISENOX [Suspect]
     Indication: ACUTE PROMYELOCYTIC LEUKAEMIA
     Dosage: TOTAL DOSE 720 MG), IVI
     Route: 042

REACTIONS (3)
  - BLOOD ARSENIC INCREASED [None]
  - DEMYELINATING POLYNEUROPATHY [None]
  - PLASMAPHERESIS [None]
